FAERS Safety Report 6888635-8 (Version None)
Quarter: 2010Q3

REPORT INFORMATION
  Report Type: 
  Country: None (occurrence: None)
  Receive Date: 20100730
  Receipt Date: 20080327
  Transmission Date: 20110219
  Serious: No
  Sender: FDA-Public Use
  Company Number: US-PFIZER INC-2007067855

PATIENT
  Sex: Male

DRUGS (3)
  1. LOMOTIL [Suspect]
     Route: 048
     Dates: start: 19700101
  2. AMITRIPTYLINE HYDROCHLORIDE [Concomitant]
  3. MOBIC [Concomitant]

REACTIONS (2)
  - BLOOD PRESSURE INCREASED [None]
  - MALAISE [None]
